FAERS Safety Report 9154041 (Version 1)
Quarter: 2013Q1

REPORT INFORMATION
  Report Type: Spontaneous
  Country: US (occurrence: None)
  Receive Date: 20130306
  Receipt Date: 20130306
  Transmission Date: 20140127
  Serious: Yes (Other)
  Sender: FDA-Public Use
  Company Number: None

PATIENT
  Age: 54 Year
  Sex: Male
  Weight: 77.11 kg

DRUGS (1)
  1. DILTIAZEM [Suspect]
     Indication: BLOOD PRESSURE ABNORMAL
     Dates: start: 20121212, end: 20130215

REACTIONS (3)
  - Musculoskeletal pain [None]
  - Back pain [None]
  - Neck pain [None]
